FAERS Safety Report 19310146 (Version 1)
Quarter: 2021Q2

REPORT INFORMATION
  Report Type: Spontaneous
  Country: IL (occurrence: IL)
  Receive Date: 20210526
  Receipt Date: 20210526
  Transmission Date: 20210717
  Serious: Yes (Life-Threatening)
  Sender: FDA-Public Use
  Company Number: IL-PFIZER INC-2021540050

PATIENT
  Age: 4 Year
  Sex: Male

DRUGS (2)
  1. VENTOLIN [Concomitant]
     Active Substance: ALBUTEROL SULFATE
     Dosage: UNK
  2. SOLU?MEDROL [Suspect]
     Active Substance: METHYLPREDNISOLONE SODIUM SUCCINATE
     Dosage: 26 MG
     Dates: start: 20210423

REACTIONS (5)
  - Hypotension [Unknown]
  - Abdominal pain upper [Unknown]
  - Dysphonia [Unknown]
  - Anaphylactic reaction [Unknown]
  - Swelling of eyelid [Unknown]
